FAERS Safety Report 9847251 (Version 1)
Quarter: 2014Q1

REPORT INFORMATION
  Report Type: Spontaneous
  Country: US (occurrence: US)
  Receive Date: 20140127
  Receipt Date: 20140127
  Transmission Date: 20141002
  Serious: Yes (Hospitalization)
  Sender: FDA-Public Use
  Company Number: US-DYAX CORP.-2011DX000030

PATIENT
  Age: 46 Year
  Sex: Female
  Weight: 99.88 kg

DRUGS (16)
  1. KALBITOR [Suspect]
     Indication: HEREDITARY ANGIOEDEMA
     Route: 058
     Dates: start: 20110610, end: 20110610
  2. KALBITOR [Suspect]
     Route: 058
     Dates: start: 20110609, end: 20110609
  3. KALBITOR [Suspect]
     Route: 058
     Dates: start: 20110308
  4. DANAZOL [Concomitant]
     Indication: PRODUCT USED FOR UNKNOWN INDICATION
     Route: 065
     Dates: end: 20110602
  5. DILAUDID [Concomitant]
     Indication: PAIN
     Route: 042
     Dates: start: 201106, end: 201106
  6. DILAUDID [Concomitant]
     Route: 042
     Dates: start: 201106, end: 201106
  7. ZOFRAN [Concomitant]
     Indication: NAUSEA
     Route: 042
     Dates: start: 201106, end: 201106
  8. HUMALOG [Concomitant]
     Indication: DIABETES MELLITUS
     Route: 058
     Dates: start: 201106, end: 201106
  9. LOVENOX [Concomitant]
     Indication: THROMBOSIS PROPHYLAXIS
     Route: 058
     Dates: start: 201106, end: 201106
  10. XANAX [Concomitant]
     Indication: ANXIETY
     Route: 048
  11. ATENOLOL [Concomitant]
     Indication: HYPERTENSION
     Route: 048
  12. NEURONTIN [Concomitant]
     Indication: FIBROMYALGIA
     Route: 048
  13. MIRAPEX [Concomitant]
     Indication: RESTLESS LEGS SYNDROME
     Route: 065
  14. METFORMIN [Concomitant]
     Indication: BLOOD GLUCOSE INCREASED
     Route: 065
  15. PERCOCET [Concomitant]
     Indication: PRODUCT USED FOR UNKNOWN INDICATION
     Route: 065
  16. PEPCID [Concomitant]
     Indication: PRODUCT USED FOR UNKNOWN INDICATION
     Route: 065

REACTIONS (1)
  - Hereditary angioedema [Recovered/Resolved]
